FAERS Safety Report 6773701-8 (Version None)
Quarter: 2010Q2

REPORT INFORMATION
  Report Type: 
  Country: None (occurrence: None)
  Receive Date: 20100617
  Receipt Date: 20100608
  Transmission Date: 20101027
  Serious: Yes (Hospitalization)
  Sender: FDA-Public Use
  Company Number: US-BIOGENIDEC-2010BI019165

PATIENT
  Age: 59 Year
  Sex: Female

DRUGS (1)
  1. TYSABRI [Suspect]
     Indication: MULTIPLE SCLEROSIS
     Route: 042
     Dates: start: 20080218

REACTIONS (5)
  - FIBULA FRACTURE [None]
  - INSOMNIA [None]
  - PANIC ATTACK [None]
  - TIBIA FRACTURE [None]
  - URINARY TRACT INFECTION [None]
